FAERS Safety Report 15329649 (Version 2)
Quarter: 2018Q4

REPORT INFORMATION
  Report Type: Spontaneous
  Country: US (occurrence: US)
  Receive Date: 20180829
  Receipt Date: 20181218
  Transmission Date: 20190204
  Serious: Yes (Hospitalization)
  Sender: FDA-Public Use
  Company Number: US-MYLANLABS-2018M1063431

PATIENT
  Sex: Female
  Weight: 54 kg

DRUGS (1)
  1. XULANE [Suspect]
     Active Substance: ETHINYL ESTRADIOL\NORELGESTROMIN
     Indication: PRODUCT USED FOR UNKNOWN INDICATION
     Dosage: UNK
     Route: 062
     Dates: start: 201712

REACTIONS (9)
  - Enteritis infectious [Unknown]
  - Depression [Unknown]
  - Insomnia [Unknown]
  - Anxiety [Unknown]
  - Neurogenic bladder [Unknown]
  - Ileus paralytic [Unknown]
  - Post procedural complication [Unknown]
  - Embolism [Unknown]
  - Headache [Unknown]
